FAERS Safety Report 7467643-2 (Version None)
Quarter: 2011Q2

REPORT INFORMATION
  Report Type: 
  Country: None (occurrence: None)
  Receive Date: 20110509
  Receipt Date: 20110503
  Transmission Date: 20111010
  Serious: Yes (Hospitalization, Other)
  Sender: FDA-Public Use
  Company Number: BR-PFIZER INC-2011037389

PATIENT
  Age: 74 Year
  Sex: Female
  Weight: 55 kg

DRUGS (8)
  1. OXYCONTIN [Suspect]
     Dosage: UNK, 1 TABLET PER DAY
     Dates: start: 20101101, end: 20110318
  2. LYRICA [Suspect]
     Indication: PAIN
  3. MELOXICAM [Concomitant]
     Indication: ARTHROPATHY
     Dosage: UNK
  4. LYRICA [Suspect]
  5. AESCULUS HIPPOCASTANUM [Concomitant]
     Indication: AMNESIA
     Dosage: UNK
  6. OXYCONTIN [Suspect]
     Indication: BACK PAIN
     Dosage: UNK, 2 TABLETS PER DAY
     Route: 048
     Dates: end: 20101101
  7. GINKO BILOBA [Concomitant]
     Indication: AMNESIA
     Dosage: UNK
  8. LYRICA [Suspect]
     Indication: BACK PAIN
     Dosage: 150MG, 1X/DAY
     Route: 048
     Dates: start: 20101109, end: 20110411

REACTIONS (4)
  - VISUAL ACUITY REDUCED [None]
  - METAMORPHOPSIA [None]
  - BACK PAIN [None]
  - DIPLOPIA [None]
